FAERS Safety Report 25153487 (Version 6)
Quarter: 2025Q2

REPORT INFORMATION
  Report Type: Spontaneous
  Country: MX (occurrence: MX)
  Receive Date: 20250403
  Receipt Date: 20250502
  Transmission Date: 20250716
  Serious: Yes (Hospitalization, Other)
  Sender: UNITED THERAPEUTICS
  Company Number: MX-UNITED THERAPEUTICS-UNT-2025-008329

PATIENT
  Age: 50 Year
  Weight: 56 kg

DRUGS (5)
  1. REMODULIN [Suspect]
     Active Substance: TREPROSTINIL
     Indication: Pulmonary arterial hypertension
  2. REMODULIN [Suspect]
     Active Substance: TREPROSTINIL
  3. REMODULIN [Suspect]
     Active Substance: TREPROSTINIL
  4. LIDOCAINE [Concomitant]
     Active Substance: LIDOCAINE
     Indication: Catheter site pain
     Dosage: UNK, Q12H
  5. ACETAMINOPHEN\TRAMADOL [Concomitant]
     Active Substance: ACETAMINOPHEN\TRAMADOL
     Indication: Catheter site pain

REACTIONS (8)
  - Catheter site abscess [Recovering/Resolving]
  - Catheter site inflammation [Recovered/Resolved]
  - Blindness [Unknown]
  - Catheter site pain [Not Recovered/Not Resolved]
  - Incorrect route of product administration [Not Recovered/Not Resolved]
  - Device dislocation [Recovered/Resolved]
  - Device infusion issue [Recovered/Resolved]
  - Incorrect dose administered [Unknown]
